FAERS Safety Report 6960448-8 (Version None)
Quarter: 2010Q3

REPORT INFORMATION
  Report Type: 
  Country: None (occurrence: None)
  Receive Date: 20100901
  Receipt Date: 20100818
  Transmission Date: 20110219
  Serious: Yes (Other)
  Sender: FDA-Public Use
  Company Number: IT-JNJFOC-20100604985

PATIENT
  Age: 60 Year
  Sex: Female

DRUGS (3)
  1. LEVOFLOXACIN [Suspect]
     Indication: PRODUCT USED FOR UNKNOWN INDICATION
     Route: 048
  2. DIOSMIN [Concomitant]
     Route: 065
  3. PROMESTRIENE [Concomitant]
     Route: 065

REACTIONS (3)
  - DRY SKIN [None]
  - HYPERAEMIA [None]
  - HYPERKERATOSIS [None]
